FAERS Safety Report 18221329 (Version 2)
Quarter: 2020Q3

REPORT INFORMATION
  Report Type: Spontaneous
  Country: US (occurrence: US)
  Receive Date: 20200902
  Receipt Date: 20200914
  Transmission Date: 20201103
  Serious: No
  Sender: FDA-Public Use
  Company Number: US-BAYER-2020-184376

PATIENT
  Sex: Female

DRUGS (1)
  1. CLARITIN [Suspect]
     Active Substance: LORATADINE
     Indication: OTORRHOEA
     Dosage: 1 DF, QD
     Route: 048

REACTIONS (4)
  - Off label use [Unknown]
  - Dry eye [Unknown]
  - Product use in unapproved indication [Unknown]
  - Suspected product contamination [None]
